FAERS Safety Report 6785747-4 (Version None)
Quarter: 2010Q2

REPORT INFORMATION
  Report Type: 
  Country: None (occurrence: None)
  Receive Date: 20100623
  Receipt Date: 20100611
  Transmission Date: 20101027
  Serious: No
  Sender: FDA-Public Use
  Company Number: US-B.I. PHARMACEUTICALS,INC./RIDGEFIELD-2010-BP-06730BP

PATIENT
  Sex: Male

DRUGS (5)
  1. COMBIVENT [Suspect]
     Route: 055
     Dates: start: 20070101
  2. PREDNISONE [Concomitant]
  3. ASMANEX TWISTHALER [Concomitant]
  4. MEDICATION NOT FURTHER SPECIFIED [Concomitant]
     Indication: HYPERTENSION
  5. MEDICATION NOT FURTHER SPECIFIED [Concomitant]
     Indication: BLOOD CHOLESTEROL INCREASED

REACTIONS (1)
  - DRUG INEFFECTIVE [None]
